FAERS Safety Report 7332480-6 (Version None)
Quarter: 2011Q1

REPORT INFORMATION
  Report Type: 
  Country: None (occurrence: None)
  Receive Date: 20110304
  Receipt Date: 20110301
  Transmission Date: 20110831
  Serious: Yes (Other)
  Sender: FDA-Public Use
  Company Number: CH-ROCHE-762951

PATIENT
  Age: 54 Year
  Sex: Female

DRUGS (1)
  1. BONIVA [Suspect]
     Dosage: FREQUENCY: SINGLE
     Route: 042
     Dates: start: 20110225, end: 20110225

REACTIONS (1)
  - ANGIOEDEMA [None]
